FAERS Safety Report 11863369 (Version 1)
Quarter: 2015Q4

REPORT INFORMATION
  Report Type: Spontaneous
  Country: IN (occurrence: IN)
  Receive Date: 20151223
  Receipt Date: 20151223
  Transmission Date: 20160305
  Serious: Yes (Disabling, Other)
  Sender: FDA-Public Use
  Company Number: IN-WATSON-2015-14439

PATIENT
  Age: 45 Year
  Sex: Female

DRUGS (3)
  1. RISPERIDONE (UNKNOWN) [Suspect]
     Active Substance: RISPERIDONE
     Indication: SCHIZOPHRENIA
     Dosage: 6 MG, UNK
     Route: 065
  2. CLOZAPINE (UNKNOWN) [Suspect]
     Active Substance: CLOZAPINE
     Indication: SCHIZOPHRENIA
     Dosage: 300 MG, DAILY
     Route: 065
  3. CHLORPROMAZINE HYDROCHLORIDE (WATSON LABORATORIES) [Suspect]
     Active Substance: CHLORPROMAZINE HYDROCHLORIDE
     Indication: SCHIZOPHRENIA
     Dosage: 400 MG, UNK
     Route: 065

REACTIONS (4)
  - Tardive dyskinesia [Unknown]
  - Pericarditis [Recovered/Resolved]
  - Pericardial effusion [Recovered/Resolved]
  - Pleural effusion [Recovered/Resolved]
